FAERS Safety Report 21412791 (Version 2)
Quarter: 2024Q3

REPORT INFORMATION
  Report Type: Spontaneous
  Country: US (occurrence: US)
  Receive Date: 20221005
  Receipt Date: 20240925
  Transmission Date: 20241017
  Serious: No
  Sender: SANOFI AVENTIS
  Company Number: US-SA-SAC20221004000253

PATIENT
  Age: 16 Year
  Sex: Female

DRUGS (1)
  1. DUPIXENT [Suspect]
     Active Substance: DUPILUMAB
     Indication: Asthma
     Dosage: 300 MG, QOW
     Route: 058
     Dates: start: 20210202

REACTIONS (4)
  - Respiration abnormal [Unknown]
  - Migraine [Unknown]
  - Wheezing [Unknown]
  - Toothache [Unknown]

NARRATIVE: CASE EVENT DATE: 20220701
